FAERS Safety Report 23949933 (Version 1)
Quarter: 2024Q2

REPORT INFORMATION
  Report Type: Spontaneous
  Country: JP (occurrence: JP)
  Receive Date: 20240607
  Receipt Date: 20240607
  Transmission Date: 20240716
  Serious: Yes (Other)
  Sender: FDA-Public Use
  Company Number: JP-MYE-2024M1049263AA

PATIENT
  Age: 7 Decade
  Sex: Male
  Weight: 59 kg

DRUGS (12)
  1. VANCOMYCIN HYDROCHLORIDE [Suspect]
     Active Substance: VANCOMYCIN HYDROCHLORIDE
     Indication: Infection
     Dosage: 1.75 GRAM, QD
     Route: 042
     Dates: start: 202402
  2. VANCOMYCIN HYDROCHLORIDE [Suspect]
     Active Substance: VANCOMYCIN HYDROCHLORIDE
     Dosage: 0.75 GRAM, BID
     Route: 042
     Dates: start: 202402, end: 202402
  3. LOXOPROFEN SODIUM [Suspect]
     Active Substance: LOXOPROFEN SODIUM
     Indication: Analgesic therapy
     Dosage: 60 MILLIGRAM, QD
     Route: 048
  4. LOXOPROFEN SODIUM [Suspect]
     Active Substance: LOXOPROFEN SODIUM
     Dosage: 60 MILLIGRAM, TID
     Route: 048
     Dates: start: 202402, end: 202402
  5. PIPERACILLIN SODIUM\TAZOBACTAM SODIUM [Suspect]
     Active Substance: PIPERACILLIN SODIUM\TAZOBACTAM SODIUM
     Indication: Infection
     Dosage: 4.5 GRAM, TID
     Route: 042
     Dates: start: 202402, end: 202402
  6. RABEPRAZOLE SODIUM [Suspect]
     Active Substance: RABEPRAZOLE SODIUM
     Indication: Prophylaxis
     Dosage: 10 MILLIGRAM, QD
     Route: 048
     Dates: start: 202402, end: 202402
  7. MEROPENEM [Suspect]
     Active Substance: MEROPENEM
     Indication: Infection
     Dosage: 0.5 GRAM, TID
     Route: 042
     Dates: start: 202402, end: 202402
  8. MEROPENEM [Suspect]
     Active Substance: MEROPENEM
     Dosage: 0.5 GRAM, BID
     Route: 042
     Dates: start: 202402
  9. MEROPENEM [Suspect]
     Active Substance: MEROPENEM
     Dosage: 0.5 GRAM, QD
     Route: 042
     Dates: start: 202402
  10. MEROPENEM [Suspect]
     Active Substance: MEROPENEM
     Dosage: 0.25 GRAM, QD
     Route: 042
  11. IOPAMIDOL [Suspect]
     Active Substance: IOPAMIDOL
     Indication: Angiogram
     Dosage: 150 MILLILITER, QD
     Route: 042
     Dates: start: 202402, end: 202402
  12. BIO-THREE [Concomitant]
     Active Substance: HERBALS
     Indication: Product used for unknown indication
     Dosage: 1 DOSAGE FORM, TID
     Route: 048

REACTIONS (3)
  - Renal disorder [Recovering/Resolving]
  - Erythema [Recovered/Resolved]
  - Pruritus [Recovering/Resolving]

NARRATIVE: CASE EVENT DATE: 20240201
